FAERS Safety Report 24574655 (Version 1)
Quarter: 2024Q4

REPORT INFORMATION
  Report Type: Spontaneous
  Country: IT (occurrence: IT)
  Receive Date: 20241104
  Receipt Date: 20241104
  Transmission Date: 20250115
  Serious: Yes (Other)
  Sender: CIPLA
  Company Number: IT-MINISAL02-1007302

PATIENT

DRUGS (6)
  1. RIVAROXABAN [Suspect]
     Active Substance: RIVAROXABAN
     Indication: Atrial fibrillation
     Dosage: 20 MILLIGRAM, QD, EVERY 24 HOURS
     Route: 048
     Dates: start: 202308, end: 202409
  2. LASIX [Concomitant]
     Active Substance: FUROSEMIDE
     Indication: Localised oedema
     Dosage: 25 MILLIGRAM
     Route: 048
  3. AMIODARONE [Concomitant]
     Active Substance: AMIODARONE
     Indication: Atrial fibrillation
     Dosage: 200 MILLIGRAM, BID
     Route: 048
     Dates: start: 202312, end: 202408
  4. VALSARTAN [Concomitant]
     Active Substance: VALSARTAN
     Indication: Hypertension
     Dosage: 80 MILLIGRAM
     Route: 048
  5. EZETIMIBE [Concomitant]
     Active Substance: EZETIMIBE
     Indication: Hypercholesterolaemia
     Dosage: 10 MILLIGRAM
     Route: 048
  6. BISOPROLOLO EG [Concomitant]
     Indication: Atrial fibrillation
     Dosage: 2.5 MILLIGRAM, QD, EVERY 24 HOURS
     Route: 048
     Dates: start: 202312, end: 202406

REACTIONS (4)
  - Localised oedema [Recovering/Resolving]
  - Oedema peripheral [Recovering/Resolving]
  - Weight increased [Recovering/Resolving]
  - Angioedema [Recovering/Resolving]

NARRATIVE: CASE EVENT DATE: 20240601
